FAERS Safety Report 4958401-9 (Version None)
Quarter: 2006Q1

REPORT INFORMATION
  Report Type: 
  Country: None (occurrence: None)
  Receive Date: 20060329
  Receipt Date: 20060329
  Transmission Date: 20060701
  Serious: No
  Sender: FDA-Public Use
  Company Number: None

PATIENT
  Age: 15 Year
  Sex: Female

DRUGS (4)
  1. ZONEGRAN [Suspect]
     Indication: CONVULSION
     Dosage: 100 MG TID
     Dates: start: 20060216, end: 20060303
  2. LAMICTAL [Concomitant]
  3. TRANXENE [Concomitant]
  4. BACLOFEN [Concomitant]

REACTIONS (2)
  - DERMATITIS ALLERGIC [None]
  - THERAPEUTIC RESPONSE UNEXPECTED WITH DRUG SUBSTITUTION [None]
